FAERS Safety Report 22299789 (Version 4)
Quarter: 2023Q2

REPORT INFORMATION
  Report Type: Spontaneous
  Country: US (occurrence: US)
  Receive Date: 20230509
  Receipt Date: 20230621
  Transmission Date: 20230721
  Serious: No
  Sender: FDA-Public Use
  Company Number: US-Calliditas-2023CAL00445

PATIENT
  Age: 29 Year
  Sex: Female

DRUGS (8)
  1. TARPEYO [Suspect]
     Active Substance: BUDESONIDE
     Indication: IgA nephropathy
     Dosage: 16 MG (4 MG CAPSULES) ONCE DAILY
     Route: 048
     Dates: start: 20230413, end: 20230518
  2. LOSARTAN [Concomitant]
     Active Substance: LOSARTAN
  3. FARXIGA [Concomitant]
     Active Substance: DAPAGLIFLOZIN PROPANEDIOL
  4. ATORVASTATIN [Concomitant]
     Active Substance: ATORVASTATIN
  5. SERTRALINE [Concomitant]
     Active Substance: SERTRALINE HYDROCHLORIDE
  6. ALPRAZOLAM [Concomitant]
     Active Substance: ALPRAZOLAM
  7. PEPCID [Concomitant]
     Active Substance: FAMOTIDINE
  8. TRIAZOLAM [Concomitant]
     Active Substance: TRIAZOLAM

REACTIONS (13)
  - Vomiting [Not Recovered/Not Resolved]
  - Hunger [Recovered/Resolved]
  - Nausea [Not Recovered/Not Resolved]
  - Feeling abnormal [Recovered/Resolved]
  - Mood altered [Recovered/Resolved]
  - Malaise [Recovered/Resolved]
  - Condition aggravated [Recovered/Resolved]
  - Constipation [Recovered/Resolved]
  - Product residue present [Recovered/Resolved]
  - Abdominal distension [Recovered/Resolved]
  - Abdominal pain upper [Recovered/Resolved]
  - Increased appetite [Recovered/Resolved]
  - Vomiting [Not Recovered/Not Resolved]

NARRATIVE: CASE EVENT DATE: 20230414
